FAERS Safety Report 6510828-X (Version None)
Quarter: 2009Q4

REPORT INFORMATION
  Report Type: 
  Country: None (occurrence: None)
  Receive Date: 20091222
  Receipt Date: 20090319
  Transmission Date: 20100525
  Serious: No
  Sender: FDA-Public Use
  Company Number: US-ASTRAZENECA-2009UW02151

PATIENT
  Age: 62 Year
  Sex: Female
  Weight: 59 kg

DRUGS (5)
  1. CRESTOR [Suspect]
     Indication: BLOOD CHOLESTEROL INCREASED
     Route: 048
     Dates: start: 20090205, end: 20090317
  2. FISH OIL [Concomitant]
  3. FLAX OIL [Concomitant]
  4. METAMUCIL [Concomitant]
  5. CODEINE [Concomitant]

REACTIONS (3)
  - DRUG ADMINISTRATION ERROR [None]
  - MYALGIA [None]
  - RESTLESS LEGS SYNDROME [None]
